FAERS Safety Report 7118240-X (Version None)
Quarter: 2010Q4

REPORT INFORMATION
  Report Type: 
  Country: None (occurrence: None)
  Receive Date: 20101123
  Receipt Date: 20101111
  Transmission Date: 20110411
  Serious: Yes (Other)
  Sender: FDA-Public Use
  Company Number: US-BAYER-201047276GPV

PATIENT
  Age: 66 Year
  Sex: Female

DRUGS (1)
  1. LEUKINE [Suspect]
     Indication: MELANOMA RECURRENT
     Dosage: 2 WEEKS ON, 2 WEEKS OFF
     Dates: start: 20100426

REACTIONS (4)
  - HYSTERECTOMY [None]
  - INJECTION SITE ERYTHEMA [None]
  - INJECTION SITE INFLAMMATION [None]
  - UTERINE MASS [None]
